FAERS Safety Report 8340366-3 (Version None)
Quarter: 2012Q2

REPORT INFORMATION
  Report Type: 
  Country: None (occurrence: None)
  Receive Date: 20120507
  Receipt Date: 20120504
  Transmission Date: 20120825
  Serious: Yes (Hospitalization)
  Sender: FDA-Public Use
  Company Number: US-PFIZER INC-2012109923

PATIENT
  Sex: Male
  Weight: 69.388 kg

DRUGS (2)
  1. PRADAXA [Concomitant]
     Indication: ATRIAL FIBRILLATION
     Dosage: 150 MG, 2X/DAY
  2. TIKOSYN [Suspect]
     Indication: ATRIAL FIBRILLATION
     Dosage: 375 MG (250 MG + 125 MG), 2X/DAY
     Dates: start: 20110315, end: 20120503

REACTIONS (5)
  - TACHYCARDIA [None]
  - DYSPNOEA [None]
  - HYPOTENSION [None]
  - OEDEMA PERIPHERAL [None]
  - SICK SINUS SYNDROME [None]
